FAERS Safety Report 15377660 (Version 1)
Quarter: 2018Q3

REPORT INFORMATION
  Report Type: Spontaneous
  Country: US (occurrence: US)
  Receive Date: 20180913
  Receipt Date: 20180913
  Transmission Date: 20181010
  Serious: No
  Sender: FDA-Public Use
  Company Number: US-LPDUSPRD-20171563

PATIENT
  Sex: Female

DRUGS (1)
  1. INJECTAFER [Suspect]
     Active Substance: FERRIC CARBOXYMALTOSE
     Dosage: UNKNOWN
     Route: 042
     Dates: start: 201711

REACTIONS (4)
  - Dizziness [Unknown]
  - Nausea [Unknown]
  - Ill-defined disorder [Unknown]
  - Headache [Unknown]

NARRATIVE: CASE EVENT DATE: 201711
